FAERS Safety Report 15043604 (Version 1)
Quarter: 2018Q2

REPORT INFORMATION
  Report Type: Spontaneous
  Country: GB (occurrence: GB)
  Receive Date: 20180621
  Receipt Date: 20180621
  Transmission Date: 20180711
  Serious: Yes (Other)
  Sender: FDA-Public Use
  Company Number: GB-PFIZER INC-2018248439

PATIENT
  Age: 77 Year
  Sex: Female
  Weight: 69.9 kg

DRUGS (39)
  1. CODEINE [Concomitant]
     Active Substance: CODEINE
     Dosage: 240 MG, 1X/DAY
     Route: 048
     Dates: start: 20180415, end: 20180416
  2. PARACETAMOL [Concomitant]
     Active Substance: ACETAMINOPHEN
     Dosage: 4 G, DAILY
     Route: 048
     Dates: start: 20180212
  3. TRAMADOL. [Concomitant]
     Active Substance: TRAMADOL
     Dosage: 200 MG, DAILY
     Route: 042
     Dates: start: 20180425
  4. MORPHINE [Concomitant]
     Active Substance: MORPHINE
     Dosage: 5-10 MG EVERY TWO HOURS
     Route: 048
     Dates: start: 20180425
  5. SALBUTAMOL [Concomitant]
     Active Substance: ALBUTEROL
     Dosage: 5 MG, ONCE EVERY FOUR HOURS
     Route: 055
     Dates: start: 20180510
  6. SALBUTAMOL [Concomitant]
     Active Substance: ALBUTEROL
     Dosage: 800 UG, 1X/DAY
     Route: 055
     Dates: start: 20180415, end: 20180430
  7. CIPROFLOXACIN. [Concomitant]
     Active Substance: CIPROFLOXACIN
     Dosage: 800 MG, DAILY
     Route: 042
     Dates: start: 20180504, end: 20180510
  8. UMECLIDINIUM [Concomitant]
     Active Substance: UMECLIDINIUM BROMIDE
     Dosage: 55 UG, DAILY
     Route: 055
     Dates: start: 20180212
  9. GLYCERYL TRINITRATE [Concomitant]
     Active Substance: NITROGLYCERIN
     Dosage: 1 SPRAYS EVERY 5 MINUTES
     Route: 060
     Dates: start: 20180425
  10. SALBUTAMOL [Concomitant]
     Active Substance: ALBUTEROL
     Dosage: 80 MG, 1X/DAY
     Route: 055
     Dates: start: 20180427
  11. ALFACALCIDOL [Concomitant]
     Active Substance: ALFACALCIDOL
     Dosage: 1 UG, DAILY
     Route: 048
     Dates: start: 20180417
  12. BUMETANIDE. [Concomitant]
     Active Substance: BUMETANIDE
     Dosage: 1 MG, 1X/DAY (MORNING)
     Route: 048
     Dates: start: 20180212
  13. PANTOPRAZOLE SODIUM. [Concomitant]
     Active Substance: PANTOPRAZOLE SODIUM
     Dosage: 40 MG, 1X/DAY (ONCE IN TWENTY FOUR HOURS )
     Route: 042
     Dates: start: 20180424, end: 20180426
  14. DOXYCYCLINE MONOHYDRATE [Suspect]
     Active Substance: DOXYCYCLINE
     Indication: PNEUMONIA
     Dosage: 200 MG, DAILY
     Route: 048
     Dates: start: 20180510, end: 20180510
  15. GLYCERYL TRINITRATE [Concomitant]
     Active Substance: NITROGLYCERIN
     Dosage: 2 SPRAYS EVERY 5 MINUTES
     Route: 060
     Dates: start: 20180415
  16. MAGNESIUM SULFATE. [Concomitant]
     Active Substance: MAGNESIUM SULFATE
     Dosage: 20 MMOL, 2X/DAY (ONCE EVERY 12 HOURS)
     Route: 042
     Dates: start: 20180424
  17. TRANEXAMIC ACID. [Concomitant]
     Active Substance: TRANEXAMIC ACID
     Dosage: 3 G, DAILY
     Route: 048
     Dates: start: 20180423, end: 20180505
  18. SALBUTAMOL [Concomitant]
     Active Substance: ALBUTEROL
     Dosage: 400 UG, 1X/DAY
     Route: 055
     Dates: start: 20180212, end: 20180425
  19. SODIUM CHLORIDE. [Concomitant]
     Active Substance: SODIUM CHLORIDE
     Dosage: 2000 ML, DAILY
     Route: 042
     Dates: start: 20180425, end: 20180427
  20. OXYGEN. [Concomitant]
     Active Substance: OXYGEN
     Dosage: UNK
     Dates: start: 20180416, end: 20180416
  21. PREDNISOLONE. [Concomitant]
     Active Substance: PREDNISOLONE
     Dosage: 30 MG, 1X/DAY (MORNING)
     Route: 048
     Dates: start: 20180503, end: 20180508
  22. CODEINE [Concomitant]
     Active Substance: CODEINE
     Dosage: 120 MG, 1X/DAY
     Route: 048
     Dates: start: 20180425
  23. ONDANSETRON [Concomitant]
     Active Substance: ONDANSETRON
     Dosage: 12 MG, DAILY
     Route: 048
     Dates: start: 20180415
  24. CARBOCISTEINE [Concomitant]
     Active Substance: CARBOCYSTEINE
     Dosage: 1125 MG, DAILY
     Route: 048
     Dates: start: 20180507
  25. CYCLIZINE [Concomitant]
     Active Substance: CYCLIZINE
     Dosage: 150 MG, DAILY
     Route: 042
     Dates: start: 20180416
  26. IPRATROPIUM [Concomitant]
     Active Substance: IPRATROPIUM
     Dosage: 1500 UG, DAILY
     Route: 055
     Dates: start: 20180501, end: 20180508
  27. CARVEDILOL. [Concomitant]
     Active Substance: CARVEDILOL
     Dosage: 12.5 MG, DAILY
     Route: 048
     Dates: start: 20180212
  28. FUROSEMIDE. [Concomitant]
     Active Substance: FUROSEMIDE
     Dosage: 40 MG, 1X/DAY  MORNING
     Route: 048
     Dates: start: 20180509
  29. NEOMYCIN. [Concomitant]
     Active Substance: NEOMYCIN
     Dosage: 3 DF, DAILY
     Route: 045
     Dates: start: 20180422, end: 20180502
  30. LEVOTHYROXINE. [Concomitant]
     Active Substance: LEVOTHYROXINE
     Dosage: 100 UG, DAILY
     Route: 048
     Dates: start: 20180425
  31. LANSOPRAZOLE. [Concomitant]
     Active Substance: LANSOPRAZOLE
     Dosage: 30 MG, DAILY
     Route: 048
     Dates: start: 20180212
  32. TEICOPLANIN [Concomitant]
     Active Substance: TEICOPLANIN
     Dosage: 400 MG, DAILY
     Route: 042
     Dates: start: 20180506, end: 20180510
  33. LACTULOSE. [Concomitant]
     Active Substance: LACTULOSE
     Dosage: 30 ML, DAILY
     Route: 048
     Dates: start: 20180427
  34. CHLORHEXIDINE HYDROCHLORIDE [Concomitant]
     Active Substance: CHLORHEXIDINE HYDROCHLORIDE
     Dosage: 3 DF, DAILY
     Route: 045
     Dates: start: 20180422, end: 20180502
  35. PREDNISOLONE. [Concomitant]
     Active Substance: PREDNISOLONE
     Dosage: 60 MG, 1X/DAY (MORNING)
     Route: 048
     Dates: start: 20180416, end: 20180420
  36. SODIUM CHLORIDE. [Concomitant]
     Active Substance: SODIUM CHLORIDE
     Dosage: 5 ML, (ONCE HOURLY )
     Route: 055
     Dates: start: 20180427
  37. TEICOPLANIN [Concomitant]
     Active Substance: TEICOPLANIN
     Dosage: 800 MG, 1X/DAY
     Route: 042
     Dates: start: 20180504, end: 20180505
  38. GAVISCON /00237601/ [Concomitant]
     Active Substance: ALUMINUM HYDROXIDE\MAGNESIUM CARBONATE
     Dosage: 40 ML, DAILY
     Route: 048
     Dates: start: 20180212
  39. CANDESARTAN. [Concomitant]
     Active Substance: CANDESARTAN
     Dosage: 2 MG, DAILY
     Route: 048
     Dates: start: 20180212

REACTIONS (2)
  - Malaise [Unknown]
  - Idiopathic intracranial hypertension [Recovering/Resolving]

NARRATIVE: CASE EVENT DATE: 20180510
